FAERS Safety Report 9332052 (Version 2)
Quarter: 2013Q2

REPORT INFORMATION
  Report Type: Report from Study
  Country: US (occurrence: US)
  Receive Date: 20130605
  Receipt Date: 20130620
  Transmission Date: 20140414
  Serious: Yes (Disabling, Other)
  Sender: FDA-Public Use
  Company Number: US-RB-008458-10

PATIENT
  Age: 52 Year
  Sex: Male

DRUGS (4)
  1. SUBOXONE TABLET [Suspect]
     Indication: DRUG DEPENDENCE
     Route: 060
     Dates: start: 2010, end: 2011
  2. SUBOXONE FILM [Suspect]
     Indication: DRUG DEPENDENCE
     Dosage: SUBOXONE FILM
     Route: 060
  3. SIMVASTATIN [Concomitant]
     Indication: BLOOD CHOLESTEROL INCREASED
     Route: 048
     Dates: start: 2010
  4. PRO AIR INHALER [Concomitant]
     Indication: RESPIRATORY DISORDER
     Dosage: DOSING DETAILS UNKNOWN
     Route: 055

REACTIONS (7)
  - Nerve compression [Recovered/Resolved]
  - Gait disturbance [Recovered/Resolved]
  - Alveolar osteitis [Recovered/Resolved]
  - Musculoskeletal stiffness [Recovered/Resolved]
  - Hypoaesthesia [Not Recovered/Not Resolved]
  - Insomnia [Not Recovered/Not Resolved]
  - Condition aggravated [Not Recovered/Not Resolved]
